FAERS Safety Report 19516136 (Version 1)
Quarter: 2021Q3

REPORT INFORMATION
  Report Type: Spontaneous
  Country: US (occurrence: US)
  Receive Date: 20210709
  Receipt Date: 20210709
  Transmission Date: 20211014
  Serious: No
  Sender: FDA-Public Use
  Company Number: US-ASTELLAS-2020US043405

PATIENT
  Age: 84 Year
  Sex: Female

DRUGS (3)
  1. MYRBETRIQ [Suspect]
     Active Substance: MIRABEGRON
     Indication: HAEMATOCHEZIA
     Route: 065
     Dates: start: 20201203
  2. SYNTHROID [Concomitant]
     Active Substance: LEVOTHYROXINE SODIUM
     Indication: PRODUCT USED FOR UNKNOWN INDICATION
     Dosage: UNK UNK, UNKNOWN FREQ.
     Route: 065
  3. MYRBETRIQ [Suspect]
     Active Substance: MIRABEGRON
     Indication: URINARY INCONTINENCE

REACTIONS (7)
  - Lip pain [Unknown]
  - Rash pruritic [Unknown]
  - Dry skin [Unknown]
  - Lip blister [Unknown]
  - Rash macular [Unknown]
  - Lip dry [Unknown]
  - Product use in unapproved indication [Unknown]
